FAERS Safety Report 8187140-9 (Version None)
Quarter: 2012Q1

REPORT INFORMATION
  Report Type: 
  Country: None (occurrence: None)
  Receive Date: 20120306
  Receipt Date: 20120228
  Transmission Date: 20120608
  Serious: Yes (Death, Hospitalization)
  Sender: FDA-Public Use
  Company Number: US-ACTELION-A-NJ2011-58398

PATIENT

DRUGS (21)
  1. LORATADINE [Concomitant]
  2. MAGNESIUM OXIDE [Concomitant]
  3. OMEPRAZOLE [Concomitant]
  4. COUMADIN [Concomitant]
  5. CENTRUM [Concomitant]
  6. GLIPIZIDE [Concomitant]
  7. LASIX [Concomitant]
  8. METOLAZONE [Concomitant]
  9. EPOPROSTENOL SODIUM [Suspect]
     Indication: PULMONARY ARTERIAL HYPERTENSION
     Dosage: 11.4 NG/KG, PER MIN
     Route: 041
     Dates: start: 20111116, end: 20111213
  10. REVATIO [Concomitant]
  11. ALLOPURINOL [Concomitant]
  12. OXYGEN [Concomitant]
  13. ZOCOR [Concomitant]
  14. VENTAVIS [Suspect]
     Indication: PULMONARY ARTERIAL HYPERTENSION
     Dosage: UNK
     Route: 055
     Dates: start: 20100121
  15. COLACE [Concomitant]
  16. LOVAZA [Concomitant]
  17. CALCITRIOL [Concomitant]
  18. ROBITUSSIN DM [Concomitant]
  19. METOPROLOL SUCCINATE [Concomitant]
  20. ONGLYZA [Concomitant]
  21. ZOLPIDEM TARTRATE [Concomitant]

REACTIONS (7)
  - SYNCOPE [None]
  - BRADYCARDIA [None]
  - ATRIAL SEPTAL DEFECT REPAIR [None]
  - HYPOXIA [None]
  - HYPOTENSION [None]
  - PULMONARY ARTERIAL HYPERTENSION [None]
  - ATRIAL SEPTAL DEFECT [None]
